FAERS Safety Report 6522552-8 (Version None)
Quarter: 2009Q4

REPORT INFORMATION
  Report Type: 
  Country: None (occurrence: None)
  Receive Date: 20091230
  Receipt Date: 20091222
  Transmission Date: 20100525
  Serious: Yes (Disabling)
  Sender: FDA-Public Use
  Company Number: JP-MERCK-0912USA03366

PATIENT
  Age: 43 Year
  Sex: Male

DRUGS (3)
  1. DECADRON [Suspect]
     Route: 048
     Dates: start: 19990101, end: 20080201
  2. DECADRON PHOSPHATE [Suspect]
     Route: 065
     Dates: start: 19990101, end: 20080201
  3. [COMPOSITION UNSPECIFIED] [Suspect]
     Route: 065

REACTIONS (2)
  - ARTHRITIS BACTERIAL [None]
  - OSTEONECROSIS [None]
